FAERS Safety Report 23957807 (Version 1)
Quarter: 2024Q2

REPORT INFORMATION
  Report Type: Spontaneous
  Country: GB (occurrence: GB)
  Receive Date: 20240610
  Receipt Date: 20240610
  Transmission Date: 20240716
  Serious: Yes (Other)
  Sender: FDA-Public Use
  Company Number: None

PATIENT

DRUGS (1)
  1. TROPICAMIDE [Suspect]
     Active Substance: TROPICAMIDE
     Indication: Product used for unknown indication
     Dosage: UNK
     Route: 047

REACTIONS (3)
  - Hyperhidrosis [Recovering/Resolving]
  - Syncope [Recovering/Resolving]
  - Nausea [Recovering/Resolving]
